FAERS Safety Report 5294761-X (Version None)
Quarter: 2007Q2

REPORT INFORMATION
  Report Type: 
  Country: None (occurrence: None)
  Receive Date: 20070406
  Receipt Date: 20070327
  Transmission Date: 20071010
  Serious: Yes (Hospitalization)
  Sender: FDA-Public Use
  Company Number: 230296M06USA

PATIENT
  Age: 17 Year
  Sex: Male
  Weight: 59.4212 kg

DRUGS (3)
  1. REBIF [Suspect]
     Indication: MULTIPLE SCLEROSIS
     Dosage: 44 MCG, 3 IN  WEEKS, SUBCUTANEOUS
     Route: 058
     Dates: start: 20060101, end: 20061015
  2. REBIF [Suspect]
     Indication: MULTIPLE SCLEROSIS
     Dosage: 44 MCG, 3 IN  WEEKS, SUBCUTANEOUS
     Route: 058
     Dates: start: 20070301
  3. IBUPROFEN [Concomitant]

REACTIONS (5)
  - ALANINE AMINOTRANSFERASE INCREASED [None]
  - BODY TEMPERATURE DECREASED [None]
  - BODY TEMPERATURE INCREASED [None]
  - CONVULSION [None]
  - NERVOUS SYSTEM DISORDER [None]
